FAERS Safety Report 12116534 (Version 17)
Quarter: 2020Q2

REPORT INFORMATION
  Report Type: Report from Study
  Country: US (occurrence: US)
  Receive Date: 20160225
  Receipt Date: 20200401
  Transmission Date: 20200713
  Serious: Yes (Hospitalization)
  Sender: FDA-Public Use
  Company Number: US-ACTELION-A-US2016-131842

PATIENT
  Sex: Female
  Weight: 71.66 kg

DRUGS (7)
  1. TRACLEER [Suspect]
     Active Substance: BOSENTAN
     Dosage: 125 MG, BID
     Route: 048
     Dates: end: 202002
  2. METOLAZONE. [Concomitant]
     Active Substance: METOLAZONE
  3. FLOLAN [Suspect]
     Active Substance: EPOPROSTENOL SODIUM
     Indication: PRODUCT USED FOR UNKNOWN INDICATION
     Route: 065
  4. SILDENAFIL. [Concomitant]
     Active Substance: SILDENAFIL
  5. TRACLEER [Suspect]
     Active Substance: BOSENTAN
     Indication: PULMONARY ARTERIAL HYPERTENSION
     Dosage: 125 MG, BID
     Route: 048
  6. AMLODIPINE [Concomitant]
     Active Substance: AMLODIPINE BESYLATE
  7. COUMADIN [Concomitant]
     Active Substance: WARFARIN SODIUM

REACTIONS (16)
  - Hospitalisation [Unknown]
  - Catheter management [Unknown]
  - Myocardial infarction [Unknown]
  - Catheter site infection [Unknown]
  - Cerebrovascular accident [Unknown]
  - Pneumonia [Unknown]
  - Right ventricular failure [Unknown]
  - Vascular device infection [Unknown]
  - Fatigue [Unknown]
  - Influenza [Unknown]
  - Fluid retention [Unknown]
  - Kidney infection [Unknown]
  - Herpes zoster [Unknown]
  - Musculoskeletal discomfort [Unknown]
  - Sepsis [Unknown]
  - Escherichia infection [Unknown]
